FAERS Safety Report 7241375-8 (Version None)
Quarter: 2011Q1

REPORT INFORMATION
  Report Type: 
  Country: None (occurrence: None)
  Receive Date: 20110124
  Receipt Date: 20110117
  Transmission Date: 20110831
  Serious: Yes (Other)
  Sender: FDA-Public Use
  Company Number: TH-ROCHE-753730

PATIENT

DRUGS (5)
  1. PREDNISOLONE [Suspect]
     Indication: IMMUNOSUPPRESSION
     Route: 065
  2. MYCOPHENOLATE MOFETIL [Suspect]
     Indication: RENAL TRANSPLANT
     Route: 065
  3. TACROLIMUS [Suspect]
     Indication: IMMUNOSUPPRESSION
     Route: 065
  4. DILTIAZEM [Concomitant]
  5. CYCLOSPORINE [Suspect]
     Indication: IMMUNOSUPPRESSION
     Route: 065

REACTIONS (8)
  - GINGIVAL HYPERPLASIA [None]
  - TRANSPLANT REJECTION [None]
  - MYOPATHY [None]
  - URINARY TRACT INFECTION [None]
  - HERPES VIRUS INFECTION [None]
  - LYMPHOCELE [None]
  - INFARCTION [None]
  - BLADDER CANCER [None]
